FAERS Safety Report 6146911-0 (Version None)
Quarter: 2009Q2

REPORT INFORMATION
  Report Type: 
  Country: None (occurrence: None)
  Receive Date: 20090403
  Receipt Date: 20090320
  Transmission Date: 20091009
  Serious: Yes (Hospitalization)
  Sender: FDA-Public Use
  Company Number: AE-2008-063

PATIENT
  Age: 65 Year
  Sex: Female
  Weight: 50 kg

DRUGS (9)
  1. RAMIPRIL [Suspect]
     Indication: HYPERTENSION
     Dosage: QD, ORAL
     Route: 048
  2. HYDROCHLOROTHIAZIDE [Suspect]
     Dosage: ARTERIAL HYPERTENSION
  3. RISEDRONATE SODIUM [Concomitant]
  4. HEPARIN-FRACTION, NA.SALT [Concomitant]
  5. AZATHIOPRINE [Concomitant]
  6. FENTANYL-100 [Concomitant]
  7. METAMIZOLE (METAMIZOLE) [Concomitant]
  8. NULYTELY [Concomitant]
  9. TIZANIDINE HCL [Concomitant]

REACTIONS (2)
  - HYPOTENSION [None]
  - SYNCOPE [None]
